FAERS Safety Report 15271299 (Version 1)
Quarter: 2018Q3

REPORT INFORMATION
  Report Type: Spontaneous
  Country: US (occurrence: US)
  Receive Date: 20180813
  Receipt Date: 20180813
  Transmission Date: 20181010
  Serious: Yes (Other)
  Sender: FDA-Public Use
  Company Number: US-TARO PHARMACEUTICALS USA.,INC-2018SUN00410

PATIENT
  Age: 64 Year
  Sex: Female

DRUGS (5)
  1. CLOBETASOL [Suspect]
     Active Substance: CLOBETASOL
     Indication: ECZEMA
     Dosage: AS NEEDED
     Route: 061
  2. TRIAMCINOLONE [Suspect]
     Active Substance: TRIAMCINOLONE
     Indication: ECZEMA
     Dosage: TWICE A DAY
     Route: 061
  3. ECONAZOLE [Suspect]
     Active Substance: ECONAZOLE
     Indication: ECZEMA
     Dosage: UNK
     Route: 061
  4. FLUOCINONIDE. [Suspect]
     Active Substance: FLUOCINONIDE
     Indication: ECZEMA
     Dosage: TWICE A DAY
     Route: 061
  5. KETOCONAZOLE. [Suspect]
     Active Substance: KETOCONAZOLE
     Indication: ECZEMA
     Dosage: UNK
     Route: 061

REACTIONS (3)
  - Blood corticotrophin decreased [Unknown]
  - Adrenal insufficiency [Recovered/Resolved]
  - Drug level increased [Unknown]
